FAERS Safety Report 12294736 (Version 21)
Quarter: 2019Q1

REPORT INFORMATION
  Report Type: Report from Study
  Country: CA (occurrence: CA)
  Receive Date: 20160422
  Receipt Date: 20190326
  Transmission Date: 20190417
  Serious: Yes (Other)
  Sender: FDA-Public Use
  Company Number: PHHY2014CA046676

PATIENT
  Age: 79 Year
  Sex: Female

DRUGS (6)
  1. TAPAZOLE [Concomitant]
     Active Substance: METHIMAZOLE
     Indication: PRODUCT USED FOR UNKNOWN INDICATION
     Dosage: 5 MG, UNK
     Route: 065
  2. METHIMAZOLE. [Concomitant]
     Active Substance: METHIMAZOLE
     Indication: PRODUCT USED FOR UNKNOWN INDICATION
     Dosage: 5 MG, 1/2 PILL QD
     Route: 065
  3. SANDOSTATIN LAR DEPOT [Suspect]
     Active Substance: OCTREOTIDE ACETATE
     Indication: NEUROENDOCRINE CARCINOMA
     Dosage: 30 MG, QMO (EVERY 30 DAYS) (EVERY 4 WEEKS)
     Route: 030
     Dates: start: 20110408
  4. SANDOSTATIN [Suspect]
     Active Substance: OCTREOTIDE ACETATE
     Indication: NEUROENDOCRINE CARCINOMA
     Dosage: 150 UG, TID
     Route: 058
     Dates: start: 20110325
  5. OSTO-D2 [Concomitant]
     Indication: PRODUCT USED FOR UNKNOWN INDICATION
     Dosage: 50000 UG, QW
     Route: 065
  6. VITAMIN D2 [Concomitant]
     Active Substance: ERGOCALCIFEROL
     Indication: PRODUCT USED FOR UNKNOWN INDICATION
     Dosage: 50000 UG, QW
     Route: 065

REACTIONS (26)
  - Depressed mood [Unknown]
  - Sleep disorder due to general medical condition, insomnia type [Unknown]
  - Feeling abnormal [Unknown]
  - Injection site pain [Recovering/Resolving]
  - Asthenia [Unknown]
  - Decreased appetite [Unknown]
  - Blood pressure increased [Unknown]
  - Disorientation [Unknown]
  - Hypoaesthesia [Recovering/Resolving]
  - Movement disorder [Unknown]
  - Basedow^s disease [Unknown]
  - Blood pressure diastolic decreased [Unknown]
  - Gait disturbance [Recovered/Resolved]
  - Memory impairment [Not Recovered/Not Resolved]
  - Dizziness [Recovered/Resolved]
  - Body temperature decreased [Unknown]
  - Sciatica [Recovering/Resolving]
  - Dizziness [Recovering/Resolving]
  - Weight decreased [Unknown]
  - Headache [Recovered/Resolved]
  - Fatigue [Unknown]
  - Hyperthyroidism [Unknown]
  - Dyspnoea [Unknown]
  - Rash [Not Recovered/Not Resolved]
  - Dizziness [Recovered/Resolved]
  - Pain in extremity [Recovered/Resolved]

NARRATIVE: CASE EVENT DATE: 20140317
